FAERS Safety Report 19019774 (Version 2)
Quarter: 2021Q1

REPORT INFORMATION
  Report Type: Report from Study
  Country: US (occurrence: US)
  Receive Date: 20210316
  Receipt Date: 20210326
  Transmission Date: 20210420
  Serious: Yes (Hospitalization, Other)
  Sender: FDA-Public Use
  Company Number: US-BEIGENE AUS PTY LTD-BGN-2021-000697

PATIENT

DRUGS (11)
  1. MULTI?VIT [Concomitant]
     Active Substance: VITAMINS
  2. METFORMIN [Concomitant]
     Active Substance: METFORMIN HYDROCHLORIDE
  3. ACYCLOVIR. [Concomitant]
     Active Substance: ACYCLOVIR
  4. BRUKINSA [Suspect]
     Active Substance: ZANUBRUTINIB
     Indication: WALDENSTROM^S MACROGLOBULINAEMIA
     Dosage: 160 MILLIGRAM, BID
     Route: 048
     Dates: start: 20210304, end: 20210321
  5. VITAMIN D3 [Concomitant]
     Active Substance: CHOLECALCIFEROL
  6. DEXTRAN 70 W/GLYCEROL/HYPROMELLOSE [Concomitant]
  7. DILTIAZEM HCL [Concomitant]
     Active Substance: DILTIAZEM HYDROCHLORIDE
  8. PROMACTA [Concomitant]
     Active Substance: ELTROMBOPAG OLAMINE
  9. TYLENOL [Concomitant]
     Active Substance: ACETAMINOPHEN
  10. COLACE CLEAR [Concomitant]
     Active Substance: DOCUSATE SODIUM
  11. METOPROLOL TARTRATE. [Concomitant]
     Active Substance: METOPROLOL TARTRATE

REACTIONS (10)
  - Subdural haematoma [Unknown]
  - Skin haemorrhage [Unknown]
  - Tinnitus [Recovered/Resolved]
  - Skin laceration [Unknown]
  - Fall [Unknown]
  - Heart rate increased [Unknown]
  - Intentional dose omission [Unknown]
  - Headache [Recovered/Resolved]
  - Off label use [Unknown]
  - Syncope [Unknown]

NARRATIVE: CASE EVENT DATE: 20210304
